FAERS Safety Report 4922568-9 (Version None)
Quarter: 2006Q1

REPORT INFORMATION
  Report Type: 
  Country: None (occurrence: None)
  Receive Date: 20060224
  Receipt Date: 20060222
  Transmission Date: 20060701
  Serious: Yes (Other)
  Sender: FDA-Public Use
  Company Number: US-GLAXOSMITHKLINE-A0594816A

PATIENT
  Age: 45 Year
  Sex: Female

DRUGS (2)
  1. ADVAIR DISKUS 100/50 [Suspect]
     Indication: COUGH
     Dosage: 1PUFF TWICE PER DAY
     Route: 055
     Dates: start: 20060201
  2. ANTI-CHOLESTEROL MEDICATION [Concomitant]

REACTIONS (11)
  - CHAPPED LIPS [None]
  - CHOKING [None]
  - COUGH [None]
  - DIZZINESS [None]
  - DRY MOUTH [None]
  - DYSGEUSIA [None]
  - DYSPHONIA [None]
  - DYSPNOEA [None]
  - DYSURIA [None]
  - HEART RATE INCREASED [None]
  - PHARYNGOLARYNGEAL PAIN [None]
